FAERS Safety Report 9575576 (Version 1)
Quarter: 2013Q4

REPORT INFORMATION
  Report Type: Spontaneous
  Country: US (occurrence: US)
  Receive Date: 20131001
  Receipt Date: 20131001
  Transmission Date: 20140711
  Serious: No
  Sender: FDA-Public Use
  Company Number: US-AMGEN-USASP2012083701

PATIENT
  Age: 56 Year
  Sex: Female
  Weight: 61.22 kg

DRUGS (9)
  1. ENBREL [Suspect]
     Indication: PRODUCT USED FOR UNKNOWN INDICATION
     Dosage: 50 MG, WEEKLY
     Route: 058
  2. FOLIC ACID [Concomitant]
     Dosage: UNK
  3. PRILOSEC                           /00661201/ [Concomitant]
     Dosage: 10 MG, UNK
  4. CENTRUM SILVER                     /02363801/ [Concomitant]
     Dosage: UNK
  5. OMEGA 3                            /01334101/ [Concomitant]
     Dosage: 340 MG, UNK
  6. DHEA [Concomitant]
     Dosage: 10 MG, UNK
  7. PREDNISONE [Concomitant]
     Dosage: 1 MG, UNK
  8. METHOTREXATE [Concomitant]
     Dosage: 2.5 MG, UNK
  9. PLAQUENIL                          /00072602/ [Concomitant]
     Dosage: 200 MG, UNK

REACTIONS (1)
  - Upper respiratory tract infection [Unknown]
